FAERS Safety Report 24314005 (Version 1)
Quarter: 2024Q3

REPORT INFORMATION
  Report Type: Other
  Country: US (occurrence: US)
  Receive Date: 20240912
  Receipt Date: 20240912
  Transmission Date: 20241017
  Serious: Yes (Hospitalization)
  Sender: SIGMA TAU
  Company Number: US-LEADIANT GMBH-2024LBI000174

PATIENT
  Sex: Female

DRUGS (2)
  1. MATULANE [Suspect]
     Active Substance: PROCARBAZINE HYDROCHLORIDE
     Indication: Hodgkin^s disease
     Dosage: 50 MILLIGRAMS, 3 CAPSULES (150MG TOTAL) DAILY ON DAYS 1 TO 7 OF  21 DAY CYCLE
     Route: 048
     Dates: start: 20240425
  2. MESNEX [Concomitant]
     Active Substance: MESNA

REACTIONS (1)
  - Sepsis [Unknown]
